FAERS Safety Report 6165211-6 (Version None)
Quarter: 2009Q2

REPORT INFORMATION
  Report Type: 
  Country: None (occurrence: None)
  Receive Date: 20090423
  Receipt Date: 20090414
  Transmission Date: 20091009
  Serious: Yes (Hospitalization, Other)
  Sender: FDA-Public Use
  Company Number: JP-PFIZER INC-2009182124

PATIENT

DRUGS (4)
  1. SUNITINIB MALATE [Suspect]
     Indication: GASTROINTESTINAL STROMAL TUMOUR
     Dosage: 50 MG, 1X/DAY
     Dates: start: 20080829
  2. LAFUTIDINE [Concomitant]
     Dosage: UNK
     Route: 048
  3. DECADRON [Concomitant]
     Dosage: UNK
     Route: 048
  4. VOLTAREN [Concomitant]
     Dosage: UNK
     Route: 048

REACTIONS (4)
  - CHOLANGITIS [None]
  - HEPATIC FUNCTION ABNORMAL [None]
  - HYPERTHYROIDISM [None]
  - NEUTROPHIL COUNT DECREASED [None]
